FAERS Safety Report 10161735 (Version 1)
Quarter: 2014Q2

REPORT INFORMATION
  Report Type: Spontaneous
  Country: QA (occurrence: QA)
  Receive Date: 20140509
  Receipt Date: 20140509
  Transmission Date: 20141212
  Serious: Yes (Hospitalization, Other)
  Sender: FDA-Public Use
  Company Number: QA-PAR PHARMACEUTICAL, INC-2014SCPR009051

PATIENT
  Sex: 0

DRUGS (11)
  1. HYDRALAZINE [Suspect]
     Indication: HYPERTENSION
     Dosage: 50 MG, TID
     Route: 065
  2. HYDRALAZINE [Suspect]
     Dosage: 25 MG, TID
     Route: 065
  3. POTASSIUM CHLORIDE [Concomitant]
     Indication: HYPOKALAEMIA
     Dosage: UNK, UNKNOWN
     Route: 048
  4. POTASSIUM CHLORIDE [Concomitant]
     Dosage: UNK, UNKNOWN
     Route: 042
  5. PERINDOPRIL [Concomitant]
     Indication: HYPERTENSIVE CRISIS
     Dosage: 2.5 MG, UNKNOWN
     Route: 065
  6. PERINDOPRIL [Concomitant]
     Dosage: 7.5 MG, / DAY
     Route: 065
  7. ISOSORBIDE DINITRATE [Concomitant]
     Indication: HYPERTENSIVE CRISIS
     Dosage: 25 MCG/MIN, UNKNOWN
     Route: 042
  8. ISOSORBIDE DINITRATE [Concomitant]
     Dosage: 175 MCG/MIN, UNK
     Route: 042
  9. AMLODIPINE [Concomitant]
     Indication: HYPERTENSIVE CRISIS
     Dosage: UNK, UNKNOWN
     Route: 065
  10. VALPROIC ACID [Concomitant]
     Indication: CONVULSION
     Dosage: 100 MG, /HR
     Route: 042
  11. VALPROIC ACID [Concomitant]
     Dosage: UNK UNK, UNKNOWN
     Route: 048

REACTIONS (1)
  - Toxic epidermal necrolysis [Recovered/Resolved]
